FAERS Safety Report 20350571 (Version 3)
Quarter: 2022Q4

REPORT INFORMATION
  Report Type: Spontaneous
  Country: US (occurrence: US)
  Receive Date: 20220119
  Receipt Date: 20221123
  Transmission Date: 20230113
  Serious: No
  Sender: FDA-Public Use
  Company Number: US-SA-SAC20220118000212

PATIENT
  Age: 1 Year
  Sex: Female

DRUGS (3)
  1. LUMIZYME [Suspect]
     Active Substance: ALGLUCOSIDASE ALFA
     Indication: Glycogen storage disease type II
     Dosage: 350 MG, QOW
     Route: 042
     Dates: start: 202108
  2. LUMIZYME [Suspect]
     Active Substance: ALGLUCOSIDASE ALFA
     Dosage: 500 MG, QOW
     Route: 042
     Dates: start: 20210819
  3. LUMIZYME [Suspect]
     Active Substance: ALGLUCOSIDASE ALFA
     Dosage: 550 MG, QOW
     Route: 042
     Dates: start: 20220111

REACTIONS (2)
  - Constipation [Unknown]
  - Muscular weakness [Unknown]
